FAERS Safety Report 13264675 (Version 2)
Quarter: 2017Q2

REPORT INFORMATION
  Report Type: Spontaneous
  Country: US (occurrence: US)
  Receive Date: 20170223
  Receipt Date: 20170403
  Transmission Date: 20170830
  Serious: Yes (Other)
  Sender: FDA-Public Use
  Company Number: US-PFIZER INC-2017078430

PATIENT
  Age: 71 Year
  Sex: Male
  Weight: 82 kg

DRUGS (13)
  1. ISOSORBIDE. [Concomitant]
     Active Substance: ISOSORBIDE
     Indication: DYSPEPSIA
     Dosage: 30 MG, 1X/DAY, IN THE MORNING
  2. TIMOLOL. [Concomitant]
     Active Substance: TIMOLOL
     Indication: INTRAOCULAR PRESSURE TEST ABNORMAL
     Dosage: 5 MG, 1X/DAY, IN THE MORNING
  3. NITROSTAT [Suspect]
     Active Substance: NITROGLYCERIN
     Indication: CARDIAC DISORDER
     Dosage: 0.4 MG, AS NEEDED, TAKE IN THE MORNING DEFINITELY
     Route: 060
     Dates: start: 2016
  4. FINASTERIDE. [Concomitant]
     Active Substance: FINASTERIDE
     Indication: PROSTATIC DISORDER
     Dosage: 5 MG, 1X/DAY, IN THE MORNING
  5. NITROSTAT [Suspect]
     Active Substance: NITROGLYCERIN
     Indication: DYSPEPSIA
  6. BAYER ASPIRIN [Concomitant]
     Active Substance: ASPIRIN
     Indication: CARDIAC DISORDER
     Dosage: 325 MG, DAILY
  7. XANAX [Concomitant]
     Active Substance: ALPRAZOLAM
     Indication: SLEEP DISORDER
     Dosage: 2 MG, AS NEEDED
  8. LAMOTRIGINE. [Concomitant]
     Active Substance: LAMOTRIGINE
     Indication: AFFECTIVE DISORDER
     Dosage: 200 MG, 1X/DAY, IN THE MORNING
  9. LOSARTAN POTASSIUM. [Concomitant]
     Active Substance: LOSARTAN POTASSIUM
     Indication: BLOOD PRESSURE ABNORMAL
     Dosage: 50 MG, 1X/DAY
  10. OXYBUTIN [Concomitant]
     Active Substance: OXYBUTYNIN
     Indication: ENURESIS
     Dosage: 15 MG, 2X/DAY, IN THE MORNING AND AT NIGHT
  11. AMLODIPINE [Concomitant]
     Active Substance: AMLODIPINE BESYLATE
     Indication: BLOOD PRESSURE ABNORMAL
     Dosage: 10 MG, DAILY
  12. LATANOPROST. [Concomitant]
     Active Substance: LATANOPROST
     Indication: INTRAOCULAR PRESSURE TEST ABNORMAL
     Dosage: 5 MG, 1X/DAY, AT NIGHT
  13. RANEXA [Concomitant]
     Active Substance: RANOLAZINE
     Indication: ARTERIAL OCCLUSIVE DISEASE
     Dosage: 500 MG, 2X/DAY

REACTIONS (6)
  - Cataract [Unknown]
  - Eructation [Unknown]
  - Product use in unapproved indication [Unknown]
  - Glaucoma [Unknown]
  - Diplopia [Unknown]
  - Arterial occlusive disease [Unknown]

NARRATIVE: CASE EVENT DATE: 2017
